FAERS Safety Report 9093326 (Version 1)
Quarter: 2013Q1

REPORT INFORMATION
  Report Type: Report from Study
  Country: US (occurrence: US)
  Receive Date: 20130131
  Receipt Date: 20130131
  Transmission Date: 20140127
  Serious: No
  Sender: FDA-Public Use
  Company Number: US-ABBOTT-12P-163-1010803-00

PATIENT
  Sex: Female
  Weight: 102.6 kg

DRUGS (9)
  1. HUMIRA [Suspect]
     Indication: RHEUMATOID ARTHRITIS
     Route: 058
     Dates: start: 2012
  2. LOPRESSOR [Concomitant]
     Indication: HYPERTENSION
  3. LOTENSIN [Concomitant]
     Indication: HYPERTENSION
  4. MOBIC [Concomitant]
     Indication: RHEUMATOID ARTHRITIS
  5. AMLODIPINE [Concomitant]
     Indication: HYPERTENSION
  6. METHOTREXATE [Concomitant]
     Indication: RHEUMATOID ARTHRITIS
  7. PREDNISONE [Concomitant]
     Indication: RHEUMATOID ARTHRITIS
  8. FOLIC ACID [Concomitant]
     Indication: PRODUCT USED FOR UNKNOWN INDICATION
  9. PERCOCET [Concomitant]
     Indication: PAIN

REACTIONS (1)
  - Bronchitis [Recovered/Resolved]
